FAERS Safety Report 9652011 (Version 1)
Quarter: 2013Q4

REPORT INFORMATION
  Report Type: Spontaneous
  Country: US (occurrence: US)
  Receive Date: 20131029
  Receipt Date: 20131029
  Transmission Date: 20140711
  Serious: Yes (Hospitalization)
  Sender: FDA-Public Use
  Company Number: US-SA-2013SA109279

PATIENT
  Age: 43 Year
  Sex: Male

DRUGS (5)
  1. LANTUS [Suspect]
     Dosage: DOSE:25 UNIT(S)
     Route: 058
     Dates: start: 20130629
  2. PRILOSEC [Concomitant]
  3. METFORMIN [Concomitant]
  4. LISINOPRIL [Concomitant]
     Indication: BLOOD PRESSURE
  5. SIMVASTATIN [Concomitant]

REACTIONS (3)
  - Pancreatitis [Unknown]
  - Blood glucose increased [Unknown]
  - Expired drug administered [Unknown]
